FAERS Safety Report 22205293 (Version 3)
Quarter: 2023Q2

REPORT INFORMATION
  Report Type: Report from Study
  Country: US (occurrence: US)
  Receive Date: 20230413
  Receipt Date: 20230515
  Transmission Date: 20230722
  Serious: No
  Sender: FDA-Public Use
  Company Number: US-BRISTOL-MYERS SQUIBB COMPANY-2023-052646

PATIENT
  Age: 39 Year
  Sex: Female

DRUGS (3)
  1. CAMZYOS [Suspect]
     Active Substance: MAVACAMTEN
     Indication: Hypertrophic cardiomyopathy
     Route: 048
     Dates: start: 20230309
  2. CAMZYOS [Suspect]
     Active Substance: MAVACAMTEN
     Dates: start: 20230315
  3. CAMZYOS [Suspect]
     Active Substance: MAVACAMTEN
     Dates: start: 20230310, end: 20230511

REACTIONS (2)
  - Heart rate increased [Unknown]
  - Palpitations [Unknown]

NARRATIVE: CASE EVENT DATE: 20230315
